FAERS Safety Report 25491992 (Version 2)
Quarter: 2025Q3

REPORT INFORMATION
  Report Type: Report from Study
  Country: US (occurrence: US)
  Receive Date: 20250630
  Receipt Date: 20250703
  Transmission Date: 20251020
  Serious: Yes (Hospitalization)
  Sender: PHARMACOSMOS A/S
  Company Number: US-NEBO-699020

PATIENT
  Sex: Female

DRUGS (1)
  1. COSELA [Suspect]
     Active Substance: TRILACICLIB DIHYDROCHLORIDE
     Indication: Product used for unknown indication

REACTIONS (2)
  - Pneumonitis [Recovered/Resolved]
  - Pneumonia [Recovered/Resolved]
